FAERS Safety Report 6855923-0 (Version None)
Quarter: 2010Q3

REPORT INFORMATION
  Report Type: 
  Country: None (occurrence: None)
  Receive Date: 20100716
  Receipt Date: 20100716
  Transmission Date: 20110219
  Serious: Yes (Disabling)
  Sender: FDA-Public Use
  Company Number: None

PATIENT
  Sex: Male
  Weight: 79.3795 kg

DRUGS (1)
  1. AMBIEN CR [Suspect]
     Indication: SLEEP DISORDER THERAPY
     Dosage: 10 MG ONCE DAILY
     Dates: start: 20100531, end: 20100704

REACTIONS (3)
  - CONDITION AGGRAVATED [None]
  - TINNITUS [None]
  - UNEVALUABLE EVENT [None]
